FAERS Safety Report 9524172 (Version 2)
Quarter: 2014Q1

REPORT INFORMATION
  Report Type: Spontaneous
  Country: GB (occurrence: GB)
  Receive Date: 20130916
  Receipt Date: 20140128
  Transmission Date: 20141002
  Serious: Yes (Disabling)
  Sender: FDA-Public Use
  Company Number: GB-ACCORD-019344

PATIENT
  Age: 77 Year
  Sex: Male
  Weight: 77 kg

DRUGS (9)
  1. SIMVASTATIN [Concomitant]
     Dates: start: 20130528
  2. OMEPRAZOLE [Concomitant]
     Dates: start: 20130528
  3. ALFUZOSIN [Concomitant]
     Dates: start: 20130424
  4. BICALUTAMIDE [Suspect]
     Indication: PRODUCT USED FOR UNKNOWN INDICATION
     Route: 048
     Dates: start: 20130823
  5. METFORMIN [Concomitant]
     Dates: start: 20130528
  6. FINASTERIDE [Concomitant]
     Dates: start: 20130528
  7. GLICLAZIDE [Concomitant]
  8. SITAGLIPTIN/SITAGLIPTIN PHOSPHATE [Concomitant]
     Dates: start: 20130815, end: 20130816
  9. FLUCONAZOLE [Concomitant]
     Dates: start: 20130618, end: 20130619

REACTIONS (2)
  - Hypoglycaemia [Recovered/Resolved]
  - Condition aggravated [Recovered/Resolved]
